FAERS Safety Report 14098773 (Version 1)
Quarter: 2017Q4

REPORT INFORMATION
  Report Type: Spontaneous
  Country: US (occurrence: US)
  Receive Date: 20171017
  Receipt Date: 20171017
  Transmission Date: 20180321
  Serious: No
  Sender: FDA-Public Use
  Company Number: US-B.I. PHARMACEUTICALS,INC./RIDGEFIELD-2017-BI-055102

PATIENT
  Age: 59 Year
  Sex: Female

DRUGS (10)
  1. WELLBUTRIN XL [Concomitant]
     Active Substance: BUPROPION HYDROCHLORIDE
     Indication: BACK PAIN
     Dosage: 1 TABLET DAILY;  FORM STRENGTH: 300MG; FORMULATION: TABLET
     Route: 048
  2. METHOCARBAMOL. [Concomitant]
     Active Substance: METHOCARBAMOL
     Indication: MUSCLE SPASMS
     Dosage: 1 TABLET TID;  FORM STRENGTH: 750MG; FORMULATION: TABLET
     Route: 048
  3. DICYCLOMINE [Concomitant]
     Active Substance: DICYCLOMINE HYDROCHLORIDE
     Indication: IRRITABLE BOWEL SYNDROME
     Dosage: 2 CAPSULES  3-4 TIMES DAILY;  FORM STRENGTH: 10MG; FORMULATION: CAPSULE
     Route: 048
  4. WELLBUTRIN XL [Concomitant]
     Active Substance: BUPROPION HYDROCHLORIDE
     Indication: DEPRESSION
  5. OMEPRAZOLE. [Concomitant]
     Active Substance: OMEPRAZOLE
     Indication: GASTROOESOPHAGEAL REFLUX DISEASE
     Dosage: 1 CAPSULE DAILY;  FORM STRENGTH: 20MG; FORMULATION: CAPSULE
     Route: 048
  6. SPIRIVA RESPIMAT [Suspect]
     Active Substance: TIOTROPIUM BROMIDE
     Indication: CHRONIC OBSTRUCTIVE PULMONARY DISEASE
     Dosage: 2 PUFFS ONCE DAILY;  FORM STRENGTH: 2.5 MCG; FORMULATION: INHALATION SPRAY? ADMINISTRATION CORRECT?
     Route: 055
     Dates: start: 20170824, end: 201709
  7. ATENOLOL. [Concomitant]
     Active Substance: ATENOLOL
     Indication: HYPERTENSION
     Dosage: 1 TAB BID;  FORM STRENGTH: 50MG; FORMULATION: TABLET
     Route: 048
  8. PRAVASTATIN SODIUM. [Concomitant]
     Active Substance: PRAVASTATIN SODIUM
     Indication: BLOOD CHOLESTEROL INCREASED
     Dosage: 1 TABLET DAILY;  FORM STRENGTH: 20MG; FORMULATION: TABLET
     Route: 048
  9. RANITIDINE. [Concomitant]
     Active Substance: RANITIDINE
     Indication: GASTROOESOPHAGEAL REFLUX DISEASE
     Dosage: 1 TABLET BID;  FORM STRENGTH: 150MG; FORMULATION: TABLET
     Route: 048
  10. HYDROCODONE [Concomitant]
     Active Substance: HYDROCODONE
     Indication: BACK PAIN
     Dosage: 2 TABLETS QID;  FORM STRENGTH: 5MG/325MG; FORMULATION: TABLET
     Route: 048

REACTIONS (3)
  - Dyspnoea [Recovered/Resolved]
  - Dysphonia [Recovered/Resolved]
  - Throat irritation [Recovered/Resolved]

NARRATIVE: CASE EVENT DATE: 20170824
